FAERS Safety Report 19056628 (Version 1)
Quarter: 2021Q1

REPORT INFORMATION
  Report Type: Spontaneous
  Country: US (occurrence: US)
  Receive Date: 20210325
  Receipt Date: 20210325
  Transmission Date: 20210420
  Serious: Yes (Death, Life-Threatening, Hospitalization, Disabling)
  Sender: FDA-Public Use
  Company Number: None

PATIENT
  Age: 92 Year
  Sex: Female
  Weight: 74.25 kg

DRUGS (2)
  1. VERZENIO [Suspect]
     Active Substance: ABEMACICLIB
     Indication: BREAST CANCER STAGE IV
     Dosage: QUANTITY:1 TABLET(S);?
     Route: 048
  2. FASLODEX [Concomitant]
     Active Substance: FULVESTRANT

REACTIONS (4)
  - Dyspnoea [None]
  - Haemoptysis [None]
  - Acute respiratory distress syndrome [None]
  - Pneumonia [None]

NARRATIVE: CASE EVENT DATE: 20210117
